FAERS Safety Report 24325194 (Version 1)
Quarter: 2024Q3

REPORT INFORMATION
  Report Type: Spontaneous
  Country: AU (occurrence: AU)
  Receive Date: 20240916
  Receipt Date: 20240916
  Transmission Date: 20241016
  Serious: Yes (Other)
  Sender: BIOMARIN
  Company Number: AU-BIOMARINAP-AU-2024-160544

PATIENT

DRUGS (1)
  1. VOXZOGO [Suspect]
     Active Substance: VOSORITIDE
     Indication: Product used for unknown indication
     Dosage: UNK
     Route: 065
     Dates: start: 2023

REACTIONS (2)
  - Adenoidal hypertrophy [Recovered/Resolved]
  - Pharyngeal disorder [Recovered/Resolved]
